FAERS Safety Report 19249275 (Version 15)
Quarter: 2022Q4

REPORT INFORMATION
  Report Type: Spontaneous
  Country: GB (occurrence: GB)
  Receive Date: 20210512
  Receipt Date: 20221228
  Transmission Date: 20230113
  Serious: Yes (Other)
  Sender: FDA-Public Use
  Company Number: NVSC2020GB269333

PATIENT
  Age: 51 Year
  Sex: Male
  Weight: 53 kg

DRUGS (137)
  1. CISPLATIN [Suspect]
     Active Substance: CISPLATIN
     Indication: Germ cell neoplasm
     Dosage: 79 MG, QD (IN 1 LITER (NOT SPECIFIED)
     Route: 065
     Dates: start: 20200825
  2. APREPITANT [Suspect]
     Active Substance: APREPITANT
     Indication: Mineral supplementation
     Dosage: 80 MG
     Route: 065
     Dates: start: 20100825
  3. APREPITANT [Suspect]
     Active Substance: APREPITANT
     Indication: Supportive care
     Dosage: 125 MG D2 (125 MG)
     Route: 065
     Dates: start: 20200825
  4. APREPITANT [Suspect]
     Active Substance: APREPITANT
     Dosage: 80 MG
     Route: 065
     Dates: start: 20200825
  5. APREPITANT [Suspect]
     Active Substance: APREPITANT
     Dosage: 125 MG
     Route: 065
     Dates: start: 20200825
  6. APREPITANT [Suspect]
     Active Substance: APREPITANT
     Dosage: 125 MG (D1 D1)
     Route: 065
     Dates: start: 20200826
  7. APREPITANT [Suspect]
     Active Substance: APREPITANT
     Dosage: 1 DOSAGE FORM, QD (1 IN 1 D)
     Route: 065
  8. ONDANSETRON [Suspect]
     Active Substance: ONDANSETRON
     Indication: Supportive care
     Dosage: 16 MG, QD (FOR 3 DAYS (ORODISPERSIBLE FILM)
     Route: 048
     Dates: start: 20200825
  9. CALCIUM [Suspect]
     Active Substance: CALCIUM
     Indication: Mineral supplementation
     Dosage: 1 DOSAGE FORMS (1 DOSAGE FORMS,1 IN 1 D) (1 DOSAGE FORMS,1 IN 1 D)
     Route: 048
  10. CALCIUM [Suspect]
     Active Substance: CALCIUM
     Dosage: 2 DOSAGE FORM, QD ( TABLET 2UNK) (2 DOSAGE FORMS,1 IN 1 D)
     Route: 048
  11. CALCIUM [Suspect]
     Active Substance: CALCIUM
     Dosage: 8 DOSAGE FORM, QD (8 DF, QD (8 DOSAGE FORMS,1 IN 1 D) (8 DOSAGE FORMS,1 IN 1 D)
     Route: 065
  12. CALCIUM [Suspect]
     Active Substance: CALCIUM
     Dosage: UNK, QD, (UNK UNK, QD), 1 DF, QD (1 DOSAGE FORMS,1 IN 1 D)
     Route: 065
  13. CALCIUM [Suspect]
     Active Substance: CALCIUM
     Dosage: UNK
     Route: 048
  14. CALCIUM [Suspect]
     Active Substance: CALCIUM
     Dosage: UNK, QD, (UNK UNK, QD) (1 IN 1 D)
     Route: 048
  15. DEXAMETHASONE [Suspect]
     Active Substance: DEXAMETHASONE
     Indication: Supportive care
     Dosage: 8 MG, QD (8 MG, 1X/DAY ) (8 MG,1 IN 1 D)
     Route: 048
     Dates: start: 20200825
  16. DEXAMETHASONE [Suspect]
     Active Substance: DEXAMETHASONE
     Dosage: 30 MG, QD (30 MG,1 IN 1 D)
     Route: 048
     Dates: start: 20200825
  17. DEXAMETHASONE [Suspect]
     Active Substance: DEXAMETHASONE
     Dosage: 8 MG, QD (1X/DAY (8 MG,1 IN 1 D)
     Route: 065
     Dates: start: 20200825
  18. FERROUS SULFATE [Suspect]
     Active Substance: FERROUS SULFATE
     Indication: Product used for unknown indication
     Dosage: 1 DOSAGE FORM
     Route: 065
  19. ETOPOSIDE [Suspect]
     Active Substance: ETOPOSIDE
     Indication: Germ cell neoplasm
     Dosage: 360 MG, QD
     Route: 065
     Dates: start: 202007
  20. ETOPOSIDE [Suspect]
     Active Substance: ETOPOSIDE
     Dosage: 360 MG, QD (IN 1 LITER 2 BAGS (360 MG)
     Route: 065
     Dates: start: 20200825, end: 20200825
  21. ETOPOSIDE [Suspect]
     Active Substance: ETOPOSIDE
     Dosage: 360 MG
     Route: 065
     Dates: start: 20200825, end: 20200825
  22. ETOPOSIDE [Suspect]
     Active Substance: ETOPOSIDE
     Dosage: UNK
     Route: 065
     Dates: start: 202007
  23. ERGOCALCIFEROL [Suspect]
     Active Substance: ERGOCALCIFEROL
     Indication: Product used for unknown indication
     Dosage: UNK
     Route: 065
  24. PHENYLBUTAZONE [Suspect]
     Active Substance: PHENYLBUTAZONE
     Indication: Hypovitaminosis
     Dosage: 300 MG (300 MG,1 IN 1 D)
     Route: 065
  25. NICOTINE [Suspect]
     Active Substance: NICOTINE
     Indication: Drug therapy
     Dosage: 21 MG, QD (PATCH, EVERY 24 HOURS (21 MG,1 IN 1 D)
     Route: 065
  26. NICOTINE [Suspect]
     Active Substance: NICOTINE
     Dosage: 21 MG, QD (PATCH, EVERY 24 HOURS (21 MG,1 IN 1 D)
     Route: 065
  27. THIAMINE [Suspect]
     Active Substance: THIAMINE
     Indication: Hypovitaminosis
     Dosage: 300 MG, QD (300 MG,1 IN 1 D)
     Route: 065
  28. THIAMINE [Suspect]
     Active Substance: THIAMINE
     Dosage: UNK
     Route: 065
  29. THIAMINE [Suspect]
     Active Substance: THIAMINE
     Dosage: 1 DOSAGE FORM, QD (1 DF, QD, UNK, UNK, QD (1 DOSAGE FORMS,1 IN 1 D)
     Route: 065
  30. THIAMINE HYDROCHLORIDE [Suspect]
     Active Substance: THIAMINE HYDROCHLORIDE
     Indication: Hypovitaminosis
     Dosage: 300 MG, QD
     Route: 065
  31. THIAMINE HYDROCHLORIDE [Suspect]
     Active Substance: THIAMINE HYDROCHLORIDE
     Indication: Nutritional supplementation
     Dosage: 1 DOSAGE FORM (1 DF)
     Route: 065
  32. THIAMINE HYDROCHLORIDE [Suspect]
     Active Substance: THIAMINE HYDROCHLORIDE
     Dosage: UNK UNK, QD
     Route: 065
  33. THIAMINE HYDROCHLORIDE [Suspect]
     Active Substance: THIAMINE HYDROCHLORIDE
     Dosage: 300 MG, QD
     Route: 065
  34. THIAMINE MONONITRATE [Suspect]
     Active Substance: THIAMINE MONONITRATE
     Indication: Hypovitaminosis
     Dosage: 300 MG (300 MG,1 IN 1 D)
     Route: 065
  35. THIAMINE MONONITRATE [Suspect]
     Active Substance: THIAMINE MONONITRATE
     Indication: Hypovitaminosis
     Dosage: 300 MG, QD
     Route: 065
  36. CHOLECALCIFEROL [Suspect]
     Active Substance: CHOLECALCIFEROL
     Indication: Mineral supplementation
     Dosage: 1 DF, QD, (QD (UNK, QD, (UNK UNK, QD) )
     Route: 065
  37. CHOLECALCIFEROL [Suspect]
     Active Substance: CHOLECALCIFEROL
     Dosage: 8 DOSAGE FORM, QD (8 DF, QD
     Route: 065
  38. CHOLECALCIFEROL [Suspect]
     Active Substance: CHOLECALCIFEROL
     Dosage: 1 DOSAGE FORM, QD (1 DF, QD, (QD (UNK, QD, (UNK UNK, QD)
     Route: 065
  39. CHOLECALCIFEROL [Suspect]
     Active Substance: CHOLECALCIFEROL
     Dosage: UNK (1D) / UNK, QD (TABLET (1D)
     Route: 065
  40. CHOLECALCIFEROL [Suspect]
     Active Substance: CHOLECALCIFEROL
     Dosage: 1 DOSAGE FORM, QD (1 DF, QD)
     Route: 065
  41. CHOLECALCIFEROL [Suspect]
     Active Substance: CHOLECALCIFEROL
     Dosage: UNK UNK, QD
     Route: 065
  42. CHOLECALCIFEROL [Suspect]
     Active Substance: CHOLECALCIFEROL
     Dosage: UNK, QD
     Route: 065
  43. CHOLECALCIFEROL [Suspect]
     Active Substance: CHOLECALCIFEROL
     Dosage: UNK, QD (DOSE: 1 (UNSPECIFIED UNIT)
     Route: 065
  44. NAUZELIN [Suspect]
     Active Substance: DOMPERIDONE
     Indication: Supportive care
     Dosage: 30 MG, QD (30 MILLIGRAM, QD (PRN (30 MG,1 D)
     Route: 048
     Dates: start: 20200825
  45. NAUZELIN [Suspect]
     Active Substance: DOMPERIDONE
     Dosage: 8 MG, QD (8 MILLIGRAM, QD)
     Route: 048
     Dates: start: 20200825
  46. NAUZELIN [Suspect]
     Active Substance: DOMPERIDONE
     Dosage: UNK
     Route: 065
  47. NAUZELIN [Suspect]
     Active Substance: DOMPERIDONE
     Dosage: 30 MG, QD (30 MILLIGRAM, QD (30 MG, QD (PRN (30 MG,1 D)
     Route: 065
     Dates: start: 20200825
  48. NAUZELIN [Suspect]
     Active Substance: DOMPERIDONE
     Dosage: 30 MG, QD
     Route: 065
     Dates: start: 20200825
  49. NAUZELIN [Suspect]
     Active Substance: DOMPERIDONE
     Dosage: 16 MG (FOR 3 DAYS (16 MG,1 D)
     Route: 065
     Dates: start: 20200825
  50. NAUZELIN [Suspect]
     Active Substance: DOMPERIDONE
     Dosage: UNK
     Route: 065
     Dates: start: 20200825
  51. NAUZELIN [Suspect]
     Active Substance: DOMPERIDONE
     Dosage: UNK (TABLET)
     Route: 065
  52. NAUZELIN [Suspect]
     Active Substance: DOMPERIDONE
     Dosage: 30 MG, QD
     Route: 048
     Dates: start: 20200825
  53. NAUZELIN [Suspect]
     Active Substance: DOMPERIDONE
     Dosage: 30 MG, QD (30 MG, QD (PRN (30 MG,1D) )
     Route: 048
     Dates: start: 20200825
  54. NAUZELIN [Suspect]
     Active Substance: DOMPERIDONE
     Dosage: 8 MG, QD
     Route: 048
     Dates: start: 20200825
  55. CALCIUM CARBONATE\CHOLECALCIFEROL [Suspect]
     Active Substance: CALCIUM CARBONATE\CHOLECALCIFEROL
     Indication: Mineral supplementation
     Dosage: 1 DOSAGE FORM, QD (1 DF, QD)
     Route: 065
  56. CALCIUM CARBONATE\CHOLECALCIFEROL [Suspect]
     Active Substance: CALCIUM CARBONATE\CHOLECALCIFEROL
     Dosage: 2 DOSAGE FORM, QD (2 DF, QD (TABLET 2 UNK)
     Route: 065
  57. CALCIUM CARBONATE\CHOLECALCIFEROL [Suspect]
     Active Substance: CALCIUM CARBONATE\CHOLECALCIFEROL
     Dosage: 1 DOSAGE FORM, QD (1 DF, QD (TABLET 2 UNK)
     Route: 065
  58. CALCIUM CARBONATE\CHOLECALCIFEROL [Suspect]
     Active Substance: CALCIUM CARBONATE\CHOLECALCIFEROL
     Dosage: 1 DOSAGE FORM, QD (1 DF, QD TABLETS)
     Route: 048
  59. CALCIUM CARBONATE\CHOLECALCIFEROL [Suspect]
     Active Substance: CALCIUM CARBONATE\CHOLECALCIFEROL
     Dosage: UNK, QD (DF)
     Route: 065
  60. CALCIUM CARBONATE\CHOLECALCIFEROL [Suspect]
     Active Substance: CALCIUM CARBONATE\CHOLECALCIFEROL
     Dosage: 1 DOSAGE FORM, QD (1 D)
     Route: 065
  61. SODIUM CHLORIDE [Suspect]
     Active Substance: SODIUM CHLORIDE
     Indication: Medication dilution
     Dosage: 0.9 % (SODIUM CHLORIDE INTRAVENOUS INFUSION BP 0.9% W/V)
     Route: 065
     Dates: start: 20200825, end: 20200825
  62. SODIUM CHLORIDE [Suspect]
     Active Substance: SODIUM CHLORIDE
     Dosage: 0.9 %
     Route: 065
     Dates: start: 20200825, end: 20200825
  63. SODIUM CHLORIDE [Suspect]
     Active Substance: SODIUM CHLORIDE
     Dosage: 0.9 %
     Route: 042
     Dates: start: 20200825, end: 20200825
  64. SODIUM CHLORIDE [Suspect]
     Active Substance: SODIUM CHLORIDE
     Dosage: 0.9 %
     Route: 065
     Dates: start: 20200825, end: 20200825
  65. SODIUM CHLORIDE [Suspect]
     Active Substance: SODIUM CHLORIDE
     Dosage: 0.9 %
     Route: 065
     Dates: start: 20200825, end: 20200825
  66. CALCIUM\VITAMIN D [Suspect]
     Active Substance: CALCIUM\VITAMIN D
     Indication: Mineral supplementation
     Dosage: 8 DOSAGE FORM, QD (8 DF, QD)
     Route: 065
  67. CALCIUM\VITAMIN D [Suspect]
     Active Substance: CALCIUM\VITAMIN D
     Dosage: 1 DOSAGE FORM, QD (1 DF, QD (UNK UNK QD)
     Route: 065
  68. CALCIUM\VITAMIN D [Suspect]
     Active Substance: CALCIUM\VITAMIN D
     Dosage: 2 DOSAGE FORM, QD (2 DF, QD)
     Route: 065
  69. ENSURE [Suspect]
     Active Substance: AMINO ACIDS\DEXTROSE\ELECTROLYTES NOS\SOYBEAN OIL\VITAMINS
     Indication: Nutritional supplementation
     Dosage: 1 DOSAGE FORM, QD (1 DF, QD)
     Route: 065
  70. ENSURE [Suspect]
     Active Substance: AMINO ACIDS\DEXTROSE\ELECTROLYTES NOS\SOYBEAN OIL\VITAMINS
     Dosage: 3 DOSAGE FORM (3 DF, (3 DF TABLETS 3 UNK)
     Route: 065
  71. ENSURE [Suspect]
     Active Substance: AMINO ACIDS\DEXTROSE\ELECTROLYTES NOS\SOYBEAN OIL\VITAMINS
     Dosage: 1 DOSAGE FORM (1 DF)
     Route: 065
  72. PROPYPHENAZONE [Suspect]
     Active Substance: PROPYPHENAZONE
     Indication: Hypovitaminosis
     Dosage: 300 MG (300 MG,1 IN 1 D)
     Route: 065
  73. TRIBASIC CALCIUM PHOSPHATE [Suspect]
     Active Substance: TRIBASIC CALCIUM PHOSPHATE
     Indication: Mineral supplementation
     Dosage: UNK
     Route: 065
  74. DOMPERIDONE MALEATE [Suspect]
     Active Substance: DOMPERIDONE MALEATE
     Indication: Product used for unknown indication
     Dosage: 8 MG, QD (8 MG,1 D)
     Route: 065
     Dates: start: 20200825
  75. DOMPERIDONE MALEATE [Suspect]
     Active Substance: DOMPERIDONE MALEATE
     Dosage: 30 MG, QD (30 MILLIGRAM, QD)
     Route: 048
     Dates: start: 20200825
  76. DOMPERIDONE MALEATE [Suspect]
     Active Substance: DOMPERIDONE MALEATE
     Dosage: UNK
     Route: 065
     Dates: start: 20200825
  77. UNSPECIFIED INGREDIENT [Suspect]
     Active Substance: UNSPECIFIED INGREDIENT
     Indication: Nutritional supplementation
     Dosage: UNK
     Route: 065
  78. UNSPECIFIED INGREDIENT [Suspect]
     Active Substance: UNSPECIFIED INGREDIENT
     Dosage: UNK
     Route: 065
  79. UNSPECIFIED INGREDIENT [Suspect]
     Active Substance: UNSPECIFIED INGREDIENT
     Dosage: UNK, QD
     Route: 065
  80. UNSPECIFIED INGREDIENT [Suspect]
     Active Substance: UNSPECIFIED INGREDIENT
     Dosage: UNK, QD
     Route: 065
  81. UNSPECIFIED INGREDIENT [Suspect]
     Active Substance: UNSPECIFIED INGREDIENT
     Dosage: UNK, QD
     Route: 065
  82. UNSPECIFIED INGREDIENT [Suspect]
     Active Substance: UNSPECIFIED INGREDIENT
     Dosage: UNK, QD
     Route: 065
  83. UNSPECIFIED INGREDIENT [Suspect]
     Active Substance: UNSPECIFIED INGREDIENT
     Dosage: (1 D)
     Route: 065
  84. ARCOXIA [Suspect]
     Active Substance: ETORICOXIB
     Indication: Product used for unknown indication
     Dosage: UNK
     Route: 065
  85. COCODAMOL [Suspect]
     Active Substance: ACETAMINOPHEN\CODEINE PHOSPHATE
     Indication: Product used for unknown indication
     Dosage: UNK
     Route: 065
  86. BIOTIN [Suspect]
     Active Substance: BIOTIN
     Indication: Product used for unknown indication
     Dosage: 3 DF (3 DOSAGE FORMS)
     Route: 065
  87. CALCIUM CARBONATE [Suspect]
     Active Substance: CALCIUM CARBONATE
     Indication: Mineral supplementation
     Dosage: UNK UNK, QD (1 IN 1 D)
     Route: 065
  88. CALCIUM CARBONATE [Suspect]
     Active Substance: CALCIUM CARBONATE
     Dosage: 1 DOSAGE FORMS
     Route: 065
  89. CALCIUM CARBONATE [Suspect]
     Active Substance: CALCIUM CARBONATE
     Dosage: 2 DF, QD (2 DOSAGE FORMS,1 IN 1 D)
     Route: 065
  90. CALCIUM CARBONATE [Suspect]
     Active Substance: CALCIUM CARBONATE
     Dosage: UNK
     Route: 065
  91. CALCIUM CARBONATE [Suspect]
     Active Substance: CALCIUM CARBONATE
     Dosage: 8 DF, QD (8 DOSAGE FORMS,1 IN 1 D)
     Route: 065
  92. LINOLEIC ACID [Suspect]
     Active Substance: LINOLEIC ACID
     Indication: Product used for unknown indication
     Dosage: 3 DOSAGE FORM
     Route: 065
  93. ZINC SULFATE [Suspect]
     Active Substance: ZINC SULFATE
     Indication: Product used for unknown indication
     Dosage: 1 DF, QD (1 DOSAGE FORMS,1 IN 1 D)
     Route: 065
  94. PYRIDOXINE HYDROCHLORIDE [Suspect]
     Active Substance: PYRIDOXINE HYDROCHLORIDE
     Indication: Product used for unknown indication
     Dosage: 1 DF, QD (1 DOSAGE FORMS,1 IN 1 D)
     Route: 065
  95. SODIUM POLYMETAPHOSPHATE [Suspect]
     Active Substance: SODIUM POLYMETAPHOSPHATE
     Indication: Product used for unknown indication
     Dosage: UNK
     Route: 065
  96. RIBOFLAVIN [Suspect]
     Active Substance: RIBOFLAVIN
     Indication: Product used for unknown indication
     Dosage: 1 DF, QD (1 DOSAGE FORMS,1 IN 1 D)
     Route: 065
  97. THIAMINE HYDROCHLORIDE [Suspect]
     Active Substance: THIAMINE HYDROCHLORIDE
     Indication: Hypovitaminosis
     Dosage: 1 DOSAGE FORMS (1 DOSAGE FORMS,1 IN 1 D)
     Route: 065
  98. THIAMINE HYDROCHLORIDE [Suspect]
     Active Substance: THIAMINE HYDROCHLORIDE
     Indication: Nutritional supplementation
     Dosage: 300 MG (300 MG,1 IN 1 D)
     Route: 065
  99. ASCORBIC ACID [Suspect]
     Active Substance: ASCORBIC ACID
     Indication: Product used for unknown indication
     Dosage: 1 DF, QD (1 DOSAGE FORMS,1 IN 1 D)
     Route: 065
  100. CUPRIC SULFATE ANHYDROUS [Suspect]
     Active Substance: CUPRIC SULFATE ANHYDROUS
     Indication: Product used for unknown indication
     Dosage: 1 DOSAGE FORMS (1 DOSAGE FORMS,1 IN 1 D)
     Route: 065
  101. NICOTINAMIDE [Suspect]
     Active Substance: NIACINAMIDE
     Indication: Product used for unknown indication
     Dosage: 1 DF, QD (1 DOSAGE FORMS,1 IN 1 D)
     Route: 065
  102. NAUZELIN [Suspect]
     Active Substance: DOMPERIDONE
     Indication: Supportive care
     Dosage: 8 MG, QD (8 MG,1 D)
     Route: 048
     Dates: start: 20200825
  103. NAUZELIN [Suspect]
     Active Substance: DOMPERIDONE
     Dosage: 30 MG, QD
     Route: 048
     Dates: start: 20200825
  104. NAUZELIN [Suspect]
     Active Substance: DOMPERIDONE
     Dosage: 8 MG, QD (8 MG,1 D)
     Route: 065
     Dates: start: 20200825
  105. .ALPHA.-TOCOPHEROL ACETATE [Suspect]
     Active Substance: .ALPHA.-TOCOPHEROL ACETATE
     Indication: Product used for unknown indication
     Dosage: 1 DF, QD (1 DOSAGE FORMS,1 IN 1 D)
     Route: 065
  106. POTASSIUM IODIDE [Suspect]
     Active Substance: POTASSIUM IODIDE
     Indication: Product used for unknown indication
     Dosage: 1 DOSAGE FORMS (1 DOSAGE FORMS,1 IN 1 D)
     Route: 065
  107. CALCIUM PHOSPHATE [Suspect]
     Active Substance: CALCIUM PHOSPHATE
     Indication: Mineral supplementation
     Dosage: UNK
     Route: 065
  108. CALCIUM PHOSPHATE [Suspect]
     Active Substance: CALCIUM PHOSPHATE
     Dosage: UNK UNK, QD (QD (1 IN 1 D)
     Route: 065
  109. CALCIUM PHOSPHATE [Suspect]
     Active Substance: CALCIUM PHOSPHATE
     Dosage: UNK (DOSE: 1 (UNSPECIFIED UNIT)
     Route: 065
  110. CALCIUM PHOSPHATE [Suspect]
     Active Substance: CALCIUM PHOSPHATE
     Dosage: 8 DF, QD (8 DOSAGE FORMS,1 IN 1 D)
     Route: 065
  111. CALCIUM PHOSPHATE [Suspect]
     Active Substance: CALCIUM PHOSPHATE
     Dosage: 1 DOSAGE FORMS (1 DOSAGE FORMS,1 IN 1 D)
     Route: 065
  112. CALCIUM PHOSPHATE [Suspect]
     Active Substance: CALCIUM PHOSPHATE
     Dosage: 2 DOSAGE FORM
     Route: 065
  113. POTASSIUM CHLORIDE [Suspect]
     Active Substance: POTASSIUM CHLORIDE
     Indication: Product used for unknown indication
     Dosage: 1 DF, QD (1 DOSAGE FORMS,1 IN 1 D)
     Route: 065
  114. CYANOCOBALAMIN [Suspect]
     Active Substance: CYANOCOBALAMIN
     Indication: Product used for unknown indication
     Dosage: 1 DF, QD (1 DOSAGE FORMS,1 IN 1 D)
     Route: 065
  115. MAGNESIUM CHLORIDE [Suspect]
     Active Substance: MAGNESIUM CHLORIDE
     Indication: Product used for unknown indication
     Dosage: 1 DOSAGE FORM, ONCE A DAY (1 DOSAGE FORMS,1 IN 1 D)
     Route: 065
  116. POTASSIUM CITRATE [Suspect]
     Active Substance: POTASSIUM CITRATE
     Indication: Product used for unknown indication
     Dosage: 1 DOSAGE FORM
     Route: 065
  117. SODIUM [Suspect]
     Active Substance: SODIUM
     Indication: Product used for unknown indication
     Dosage: 3 DF, QD (3 DOSAGE FORMS,1 IN 1 D)
     Route: 065
  118. PHYTONADIONE [Suspect]
     Active Substance: PHYTONADIONE
     Indication: Product used for unknown indication
     Dosage: 1 DOSAGE FORM, QD (1 DF, QD, 1 IN 1 D)
     Route: 065
  119. FOLIC ACID [Suspect]
     Active Substance: FOLIC ACID
     Indication: Product used for unknown indication
     Dosage: 1 DOSAGE FORM
     Route: 065
  120. VITAMIN A PALMITATE [Suspect]
     Active Substance: VITAMIN A PALMITATE
     Indication: Product used for unknown indication
     Dosage: 1 DF, QD (1 DOSAGE FORMS,1 IN 1 D)
     Route: 065
  121. CALCIUM CARBONATE\CHOLECALCIFEROL [Suspect]
     Active Substance: CALCIUM CARBONATE\CHOLECALCIFEROL
     Indication: Mineral supplementation
     Dosage: UNK UNK, QD (1 IN 1 D)
     Route: 065
  122. CALCIUM CARBONATE\CHOLECALCIFEROL [Suspect]
     Active Substance: CALCIUM CARBONATE\CHOLECALCIFEROL
     Dosage: UNK, QD, (UNK UNK, QD) (1 IN 1 D)
     Route: 065
  123. CALCIUM CARBONATE\CHOLECALCIFEROL [Suspect]
     Active Substance: CALCIUM CARBONATE\CHOLECALCIFEROL
     Dosage: 1 DF, QD/1 DF; QD TABLETS (1 DOSAGE FORMS,1 IN 1 D)
     Route: 065
  124. CALCIUM CARBONATE\CHOLECALCIFEROL [Suspect]
     Active Substance: CALCIUM CARBONATE\CHOLECALCIFEROL
     Dosage: 1 DF (TABLET(1D); 1DF) (1 DOSAGE FORMS) (1 DOSAGE FORMS,1 IN 1 D)
     Route: 048
  125. CALCIUM CARBONATE\CHOLECALCIFEROL [Suspect]
     Active Substance: CALCIUM CARBONATE\CHOLECALCIFEROL
     Dosage: UNK
     Route: 065
  126. CALCIUM CARBONATE\CHOLECALCIFEROL [Suspect]
     Active Substance: CALCIUM CARBONATE\CHOLECALCIFEROL
     Dosage: UNK (DOSE 1 (UNSPECIFIED UNIT)
     Route: 065
  127. CALCIUM CARBONATE\CHOLECALCIFEROL [Suspect]
     Active Substance: CALCIUM CARBONATE\CHOLECALCIFEROL
     Dosage: 2 DOSAGE FORM, QD (TABLET 2 UNK) (2 DOSAGE FORMS,1 IN 1 D)
     Route: 065
  128. CALCIUM CARBONATE\CHOLECALCIFEROL [Suspect]
     Active Substance: CALCIUM CARBONATE\CHOLECALCIFEROL
     Dosage: 2 DF, QD (2 DF, QD (TABLET), TABLET 2 UNK) (2 DOSAGE FORMS,1 D) (2 DOSAGE FORMS)
     Route: 048
  129. CALCIUM CARBONATE\CHOLECALCIFEROL [Suspect]
     Active Substance: CALCIUM CARBONATE\CHOLECALCIFEROL
     Dosage: TABLET 2 (2 DOSAGE FORMS) (2 DOSAGE FORMS,1 D) (2 DOSAGE FORMS,1 IN 1 D)
     Route: 065
  130. CALCIUM CARBONATE\CHOLECALCIFEROL [Suspect]
     Active Substance: CALCIUM CARBONATE\CHOLECALCIFEROL
     Dosage: UNK UNK, QD(TABLET 2UNK ) (1 IN 1 D)
     Route: 065
  131. CALCIUM CARBONATE\CHOLECALCIFEROL [Suspect]
     Active Substance: CALCIUM CARBONATE\CHOLECALCIFEROL
     Dosage: 1 DF,QD, (TABLET 2UNK) (1 DOSAGE FORMS,1 IN 1 D)
     Route: 065
  132. CALCIUM CARBONATE\CHOLECALCIFEROL [Suspect]
     Active Substance: CALCIUM CARBONATE\CHOLECALCIFEROL
     Dosage: 1 UNK (1 DOSAGE FORMS)
     Route: 065
  133. DOMPERIDONE [Suspect]
     Active Substance: DOMPERIDONE
     Indication: Supportive care
     Dosage: 30 MG, QD (30 MG, QD (PRN (30 MG,1 D)
     Route: 048
     Dates: start: 20200825
  134. DOMPERIDONE [Suspect]
     Active Substance: DOMPERIDONE
     Dosage: 8 MG, QD (8 MILLIGRAM, QD )
     Route: 048
     Dates: start: 20200825
  135. CALCIUM CARBONATE\CHOLECALCIFEROL [Suspect]
     Active Substance: CALCIUM CARBONATE\CHOLECALCIFEROL
     Indication: Mineral supplementation
     Dosage: 2 DOSAGE FORM (2 DF)
     Route: 065
  136. CALCIUM CARBONATE\CHOLECALCIFEROL [Suspect]
     Active Substance: CALCIUM CARBONATE\CHOLECALCIFEROL
     Dosage: 1 DOSAGE FORM (1 DF)
     Route: 065
  137. CALCIUM CARBONATE\CHOLECALCIFEROL [Suspect]
     Active Substance: CALCIUM CARBONATE\CHOLECALCIFEROL
     Dosage: 8 DOSAGE FORM (8 DF)
     Route: 065

REACTIONS (9)
  - Hypersensitivity [Recovered/Resolved]
  - Abdominal distension [Unknown]
  - Barrett^s oesophagus [Unknown]
  - Vitamin B12 deficiency [Unknown]
  - Regurgitation [Unknown]
  - Dyspepsia [Unknown]
  - Neck pain [Unknown]
  - Oropharyngeal discomfort [Unknown]
  - Eructation [Unknown]

NARRATIVE: CASE EVENT DATE: 20200825
